FAERS Safety Report 8346408 (Version 2)
Quarter: 2013Q2

REPORT INFORMATION
  Report Type: Spontaneous
  Country: US (occurrence: None)
  Receive Date: 20111215
  Receipt Date: 20121217
  Transmission Date: 20140414
  Serious: Yes (Hospitalization, Other)
  Sender: FDA-Public Use
  Company Number: 1000016405

PATIENT
  Age: 71 Year
  Sex: Male
  Weight: 75.7 kg

DRUGS (22)
  1. NAMENDA [Suspect]
     Indication: DEMENTIA
     Route: 048
     Dates: start: 20100918
  2. ARICEPT [Suspect]
     Indication: DEMENTIA
     Route: 048
     Dates: start: 20100414, end: 20100511
  3. ARICEPT [Suspect]
     Indication: AMNESIA
     Route: 048
     Dates: start: 20100414, end: 20100511
  4. AMBIEN [Suspect]
     Indication: INSOMNIA
     Dates: start: 2010
  5. UROXATRAL [Suspect]
     Indication: PROSTATIC DISORDER
     Route: 048
     Dates: start: 200911
  6. NORVASC [Suspect]
     Indication: HYPERTENSION
     Route: 048
  7. DIAMOX SEQUELS [Suspect]
     Indication: HYPERTENSION
     Route: 048
  8. TOPROL XL [Suspect]
     Indication: HYPERTENSION
     Route: 048
  9. DILTIAZEM (DILTIAZEM HYDROCHLORIDE) (TABLETS) (DILTIAZEM HYDROCHLORIDE) [Concomitant]
  10. QUINAPRIL (QUINAPRIL) (TABLETS) (QUINAPRIL) [Concomitant]
  11. METOPROLOL (METOPROLOL) (TABLETS) (METOPROLOL) [Concomitant]
  12. AVODART (DUTASTERIDE) (TABLETS) (DUTASTERIDE) [Concomitant]
  13. POTASSIUM CHLORIDE [Concomitant]
  14. ZETIA [Concomitant]
  15. ALPRAZOLAM (ALPRAZOLAM) (TABLETS) (ALPRAZOLAM) [Concomitant]
  16. FUROSEMIDE [Concomitant]
  17. VITAMIN D (VITAMIN D) (VITAMIN D) [Concomitant]
  18. BUMEX (BUMETANIDE) (1 MILLIGRAM) (BUMETANIDE) [Concomitant]
  19. JALYN (DUTAS-T) (DUTAS-T) [Concomitant]
  20. ASPIRIN (ACETYLSALICYLIC ACID)  (TABLETS) (ACETYLSALICYLIC ACID) [Concomitant]
  21. FLINTSTONE VITAMIN (FLINTSTONE VITAMIN) (FLINTSTONE VITAMIN) [Concomitant]
  22. NAMENDA [Suspect]
     Indication: DEMENTIA
     Dosage: 20 MG (10 MG,2 IN 1 D)
     Route: 048
     Dates: start: 2011

REACTIONS (18)
  - NAUSEA [None]
  - DIZZINESS [None]
  - FATIGUE [None]
  - SOMNOLENCE [None]
  - ASTHENIA [None]
  - DRY MOUTH [None]
  - INSOMNIA [None]
  - MALAISE [None]
  - GAIT DISTURBANCE [None]
  - PNEUMONIA BACTERIAL [None]
  - ABASIA [None]
  - RHINORRHOEA [None]
  - READING DISORDER [None]
  - MUSCULAR WEAKNESS [None]
  - DRUG INTERACTION [None]
  - DYSPNOEA [None]
  - ABDOMINAL DISCOMFORT [None]
  - Transient ischaemic attack [None]
